FAERS Safety Report 9099054 (Version 11)
Quarter: 2013Q4

REPORT INFORMATION
  Report Type: Report from Study
  Country: DE (occurrence: DE)
  Receive Date: 20130214
  Receipt Date: 20131126
  Transmission Date: 20140711
  Serious: Yes (Other)
  Sender: FDA-Public Use
  Company Number: DE-ROCHE-1190276

PATIENT
  Age: 63 Year
  Sex: Female
  Weight: 57 kg

DRUGS (25)
  1. VEMURAFENIB [Suspect]
     Indication: MALIGNANT MELANOMA
     Dosage: DATE OF LAST DOSE PRIOR TO SAE: 21/DEC/2012
     Route: 048
     Dates: start: 20121127, end: 20121221
  2. VEMURAFENIB [Suspect]
     Dosage: 480 MG AM AND 480 MG PM.
     Route: 048
     Dates: start: 20130109, end: 20130526
  3. PANTOZOL (GERMANY) [Concomitant]
     Indication: PROPHYLAXIS
     Route: 048
     Dates: start: 20121108
  4. ACICLOVIR [Concomitant]
     Route: 061
     Dates: start: 20121127, end: 20121211
  5. ACICLOVIR [Concomitant]
     Route: 048
     Dates: start: 20121211, end: 20121217
  6. TANNOSYNT (GERMANY) [Concomitant]
     Dosage: 1 APPLICATION
     Route: 061
     Dates: start: 20121127, end: 20121221
  7. FUCIDINE (GERMANY) [Concomitant]
     Dosage: 1 APPLICATION
     Route: 061
     Dates: start: 20121121, end: 20121127
  8. IBUPROFEN [Concomitant]
     Dosage: SINGLE DOSE
     Route: 048
     Dates: start: 20121215, end: 20121215
  9. IBUPROFEN [Concomitant]
     Dosage: SINGLE DOSE
     Route: 048
     Dates: start: 20121218, end: 20121218
  10. IBUPROFEN [Concomitant]
     Route: 048
     Dates: start: 20121220, end: 20121220
  11. NOVALGIN [Concomitant]
     Dosage: 25 DROPS, SINGLE DOSE
     Route: 048
     Dates: start: 20121220, end: 20121220
  12. NOVALGIN [Concomitant]
     Dosage: 25 UNIT NOT REPORTED
     Route: 065
     Dates: start: 20121226, end: 20121226
  13. DEXAMETHASON [Concomitant]
     Dosage: OCULAR 1 DROP
     Route: 065
     Dates: start: 20121221, end: 20130111
  14. DEXAMETHASON [Concomitant]
     Route: 048
     Dates: start: 20121108
  15. ARCOXIA [Concomitant]
     Route: 048
     Dates: start: 20121221, end: 20121228
  16. ARCOXIA [Concomitant]
     Route: 065
     Dates: start: 20121229, end: 20130311
  17. TAVOR (GERMANY) [Concomitant]
     Route: 048
     Dates: start: 20121221, end: 20121226
  18. NOVALGIN [Concomitant]
     Dosage: 25 DROPS, SINGLE DOSE
     Route: 048
     Dates: start: 20121226, end: 20121226
  19. ZOPICLONE [Concomitant]
     Route: 048
     Dates: start: 20121227
  20. LYRICA [Concomitant]
     Route: 048
     Dates: start: 20121229, end: 20121229
  21. LYRICA [Concomitant]
     Route: 048
     Dates: start: 20121230, end: 20121230
  22. LYRICA [Concomitant]
     Route: 048
     Dates: start: 20121231
  23. FUCICORT [Concomitant]
     Dosage: 1 APPLICATION
     Route: 061
     Dates: start: 20130102
  24. FUCICORT [Concomitant]
     Route: 061
     Dates: start: 20130320
  25. GENTAMYCIN SULFATE [Concomitant]
     Dosage: 1 APPLICATION
     Route: 061
     Dates: start: 20130122, end: 20130220

REACTIONS (3)
  - Neutropenia [Recovering/Resolving]
  - Lipase increased [Recovering/Resolving]
  - Hepatic enzyme increased [Recovered/Resolved]
